FAERS Safety Report 9061205 (Version 1)
Quarter: 2013Q1

REPORT INFORMATION
  Report Type: Spontaneous
  Country: US (occurrence: US)
  Receive Date: 20130204
  Receipt Date: 20130204
  Transmission Date: 20140127
  Serious: Yes (Other)
  Sender: FDA-Public Use
  Company Number: PHEH2013US002535

PATIENT
  Sex: Female

DRUGS (13)
  1. TEKTURNA HCT [Suspect]
     Dosage: 1 DF (300 MG ALIS/ 12.5 MG HCT)
     Dates: start: 20070101
  2. SYNTHROID [Concomitant]
  3. NIFEDIPINE [Concomitant]
  4. NADOLOL [Concomitant]
  5. OMPRAZOLE [Concomitant]
  6. LABETALOL [Concomitant]
  7. TRIAMTERENE [Concomitant]
  8. CRESTOR [Concomitant]
  9. FIORICET [Concomitant]
  10. CHOLECALCIFEROL [Concomitant]
  11. DILAUDID [Concomitant]
  12. MIRALAX [Concomitant]
  13. DIAZEPAM [Concomitant]

REACTIONS (3)
  - Breast cancer [Unknown]
  - Fall [Unknown]
  - Lower limb fracture [Unknown]
